FAERS Safety Report 8187530-4 (Version None)
Quarter: 2012Q1

REPORT INFORMATION
  Report Type: 
  Country: None (occurrence: None)
  Receive Date: 20120212
  Receipt Date: 20110113
  Transmission Date: 20120608
  Serious: Yes (Other)
  Sender: FDA-Public Use
  Company Number: PHHY2010US69440

PATIENT
  Age: 35 Year
  Sex: Female

DRUGS (1)
  1. TOBI [Suspect]
     Indication: CYSTIC FIBROSIS
     Dosage: 300 MG, BID, INHALATION
     Route: 055

REACTIONS (6)
  - DEAFNESS [None]
  - BALANCE DISORDER [None]
  - NAUSEA [None]
  - SINUSITIS [None]
  - DIZZINESS [None]
  - TINNITUS [None]
